FAERS Safety Report 9264908 (Version 10)
Quarter: 2014Q2

REPORT INFORMATION
  Report Type: Report from Study
  Country: FR (occurrence: FR)
  Receive Date: 20130501
  Receipt Date: 20140625
  Transmission Date: 20141212
  Serious: Yes (Life-Threatening, Hospitalization)
  Sender: FDA-Public Use
  Company Number: FR-ROCHE-1217874

PATIENT
  Age: 73 Year
  Sex: Male
  Weight: 74 kg

DRUGS (6)
  1. VISMODEGIB [Suspect]
     Indication: BASAL CELL CARCINOMA
     Dosage: LAST DOSE PRIOR TO SAE:12/APR/2013.
     Route: 048
     Dates: start: 20130228, end: 20130413
  2. DOLIPRANE [Concomitant]
     Indication: SCIATICA
     Route: 065
     Dates: start: 20130305, end: 20130310
  3. SURGAM [Concomitant]
     Indication: BACK PAIN
     Route: 065
     Dates: start: 20130310, end: 20130312
  4. ZALDIAR [Concomitant]
     Indication: BACK PAIN
     Route: 065
     Dates: start: 20130312, end: 20130313
  5. ZALDIAR [Concomitant]
     Route: 065
     Dates: start: 20130313
  6. SERESTA [Concomitant]
     Indication: PROPHYLAXIS
     Route: 065
     Dates: start: 20130506

REACTIONS (1)
  - Hepatitis toxic [Recovered/Resolved with Sequelae]
